FAERS Safety Report 4803687-4 (Version None)
Quarter: 2005Q4

REPORT INFORMATION
  Report Type: 
  Country: None (occurrence: None)
  Receive Date: 20051017
  Receipt Date: 20050902
  Transmission Date: 20060501
  Serious: Yes (Other)
  Sender: FDA-Public Use
  Company Number: HQWYE345409SEP05

PATIENT
  Age: 70 Year
  Sex: Male
  Weight: 83.99 kg

DRUGS (6)
  1. ALAVERT [Suspect]
     Indication: HYPERSENSITIVITY
     Dosage: 1 TABLET X 1, ORAL
     Route: 048
     Dates: start: 20050801, end: 20050801
  2. ALAVERT [Suspect]
     Indication: HYPERSENSITIVITY
     Dosage: 1 TABLET X 1, ORAL
     Route: 048
     Dates: start: 20050831
  3. CELEBREX (CELEXOCIB) [Concomitant]
  4. LISINOPRIL [Concomitant]
  5. UNSPECIFIED H2 RECEPTOR ANTAGONIST (UNSPECIFIED H2 RECEPTOR ANTAGONIST [Concomitant]
  6. UNSPECIFIED DECONGESTANT (UNSPECIFIED DECONGESTANT) [Concomitant]

REACTIONS (3)
  - BLOOD PRESSURE INCREASED [None]
  - HEART RATE IRREGULAR [None]
  - PARAESTHESIA ORAL [None]
